FAERS Safety Report 5257473-4 (Version None)
Quarter: 2007Q1

REPORT INFORMATION
  Report Type: 
  Country: None (occurrence: None)
  Receive Date: 20070307
  Receipt Date: 20060814
  Transmission Date: 20070707
  Serious: No
  Sender: FDA-Public Use
  Company Number: US-GLAXOSMITHKLINE-A0616537A

PATIENT
  Age: 66 Year
  Sex: Male

DRUGS (3)
  1. REQUIP [Suspect]
     Indication: RESTLESS LEGS SYNDROME
     Dosage: 1MG PER DAY
     Route: 048
     Dates: start: 20060401
  2. PROZAC [Concomitant]
  3. HALCION [Concomitant]

REACTIONS (2)
  - PRURITUS [None]
  - REBOUND EFFECT [None]
